FAERS Safety Report 19010882 (Version 1)
Quarter: 2021Q1

REPORT INFORMATION
  Report Type: Spontaneous
  Country: PL (occurrence: PL)
  Receive Date: 20210316
  Receipt Date: 20210316
  Transmission Date: 20210420
  Serious: Yes (Hospitalization)
  Sender: FDA-Public Use
  Company Number: PL-ACCORD-219712

PATIENT
  Age: 54 Year
  Sex: Female

DRUGS (7)
  1. CELECOXIB. [Interacting]
     Active Substance: CELECOXIB
     Indication: BACK PAIN
  2. PERINDOPRIL [Interacting]
     Active Substance: PERINDOPRIL
     Indication: HYPOTENSION
  3. ATORVASTATIN/ATORVASTATIN CALCIUM [Interacting]
     Active Substance: ATORVASTATIN CALCIUM
     Indication: DYSLIPIDAEMIA
  4. RISPERIDONE. [Interacting]
     Active Substance: RISPERIDONE
     Indication: SCHIZOPHRENIA
  5. GINKGO BILOBA/GINKGO BILOBA EXTRACT/GINKGO BILOBA LEAF EXTRACT [Interacting]
     Active Substance: GINKGO BILOBA LEAF EXTRACT
     Indication: SOMNOLENCE
  6. AMLODIPINE [Suspect]
     Active Substance: AMLODIPINE BESYLATE
     Indication: HYPERTENSION
  7. NEBIVOLOL. [Interacting]
     Active Substance: NEBIVOLOL
     Indication: HYPERTENSION

REACTIONS (3)
  - Swollen tongue [Unknown]
  - Angioedema [Unknown]
  - Drug interaction [Unknown]
